FAERS Safety Report 20947463 (Version 1)
Quarter: 2022Q2

REPORT INFORMATION
  Report Type: Spontaneous
  Country: CN (occurrence: CN)
  Receive Date: 20220610
  Receipt Date: 20220610
  Transmission Date: 20220721
  Serious: Yes (Hospitalization, Other)
  Sender: FDA-Public Use
  Company Number: None

PATIENT
  Age: 48 Year
  Sex: Female
  Weight: 70 kg

DRUGS (9)
  1. CYCLOPHOSPHAMIDE [Suspect]
     Active Substance: CYCLOPHOSPHAMIDE
     Indication: Breast cancer female
     Dosage: 0.86 G, QD, CYCLOPHOSPHAMIDE (0.86 G) + SODIUM CHLORIDE (100 ML)
     Route: 041
     Dates: start: 20220506, end: 20220506
  2. CYCLOPHOSPHAMIDE [Suspect]
     Active Substance: CYCLOPHOSPHAMIDE
     Dosage: QD, PRIOR DRUG DOSE
     Route: 041
  3. SODIUM CHLORIDE [Suspect]
     Active Substance: SODIUM CHLORIDE
     Indication: Medication dilution
     Dosage: 100 ML, QD, CYCLOPHOSPHAMIDE (0.86 G) + SODIUM CHLORIDE (100 ML)
     Route: 041
     Dates: start: 20220506, end: 20220506
  4. SODIUM CHLORIDE [Suspect]
     Active Substance: SODIUM CHLORIDE
     Dosage: 100 ML, QD, EPIRUBICIN (130 MG) + SODIUM CHLORIDE (100 ML)
     Route: 041
     Dates: start: 20220506, end: 20220506
  5. SODIUM CHLORIDE [Suspect]
     Active Substance: SODIUM CHLORIDE
     Dosage: 100 ML, QD, PACLITAXEL (450 MG) + SODIUM CHLORIDE (100 ML)
     Route: 041
     Dates: start: 20220506, end: 20220506
  6. EPIRUBICIN HYDROCHLORIDE [Suspect]
     Active Substance: EPIRUBICIN HYDROCHLORIDE
     Indication: Breast cancer female
     Dosage: 130 MG, QD, EPIRUBICIN (130 MG) + SODIUM CHLORIDE (100 ML)
     Route: 041
     Dates: start: 20220506, end: 20220506
  7. EPIRUBICIN HYDROCHLORIDE [Suspect]
     Active Substance: EPIRUBICIN HYDROCHLORIDE
     Dosage: QD, PRIOR DRUG DOSE
     Route: 041
  8. PACLITAXEL [Suspect]
     Active Substance: PACLITAXEL
     Indication: Breast cancer female
     Dosage: 450 MG, QD, PACLITAXEL (450 MG) + SODIUM CHLORIDE (100 ML)
     Route: 041
     Dates: start: 20220506, end: 20220506
  9. PACLITAXEL [Suspect]
     Active Substance: PACLITAXEL
     Dosage: QD, PRIOR DRUG DOSE
     Route: 041

REACTIONS (2)
  - Myelosuppression [Recovered/Resolved]
  - Myelosuppression [Recovering/Resolving]

NARRATIVE: CASE EVENT DATE: 20220513
